APPROVED DRUG PRODUCT: PROPARACAINE HYDROCHLORIDE
Active Ingredient: PROPARACAINE HYDROCHLORIDE
Strength: 0.5%
Dosage Form/Route: SOLUTION/DROPS;OPHTHALMIC
Application: A084144 | Product #001
Applicant: SOLA BARNES HIND
Approved: Approved Prior to Jan 1, 1982 | RLD: No | RS: No | Type: DISCN